FAERS Safety Report 5784269-7 (Version None)
Quarter: 2008Q2

REPORT INFORMATION
  Report Type: 
  Country: None (occurrence: None)
  Receive Date: 20080624
  Receipt Date: 20070507
  Transmission Date: 20081010
  Serious: No
  Sender: FDA-Public Use
  Company Number: US-ASTRAZENECA-2007UW10928

PATIENT
  Sex: Male

DRUGS (1)
  1. PULMICORT-100 [Suspect]
     Route: 055
     Dates: start: 20070401

REACTIONS (2)
  - EYE IRRITATION [None]
  - PRURITUS GENERALISED [None]
